FAERS Safety Report 11288480 (Version 1)
Quarter: 2015Q3

REPORT INFORMATION
  Report Type: Spontaneous
  Country: US (occurrence: US)
  Receive Date: 20150721
  Receipt Date: 20150721
  Transmission Date: 20151125
  Serious: Yes (Other)
  Sender: FDA-Public Use
  Company Number: US-PFIZER INC-2015238705

PATIENT
  Age: 93 Year
  Sex: Male

DRUGS (1)
  1. LEVOXYL [Suspect]
     Active Substance: LEVOTHYROXINE SODIUM
     Dosage: UNK (25 MCG DAILY ON TUESDAY AND THURSDAY AND THEN 2 TABLETS OF LEVOXYL 25 MCG (50 MCG) REST OF WEEK

REACTIONS (3)
  - Dementia [Unknown]
  - Drug dose omission [Unknown]
  - Memory impairment [Unknown]
